FAERS Safety Report 24604183 (Version 1)
Quarter: 2024Q4

REPORT INFORMATION
  Report Type: Spontaneous
  Country: JP (occurrence: JP)
  Receive Date: 20241111
  Receipt Date: 20241111
  Transmission Date: 20250115
  Serious: Yes (Other)
  Sender: EISAI
  Company Number: JP-Eisai-202409980_LEN-EC_P_1

PATIENT
  Age: 58 Year
  Sex: Female

DRUGS (2)
  1. LENVATINIB [Suspect]
     Active Substance: LENVATINIB
     Indication: Endometrial cancer
     Dosage: DOSE AND FREQUENCY UNKNOWN
     Route: 048
  2. KEYTRUDA [Concomitant]
     Active Substance: PEMBROLIZUMAB
     Indication: Endometrial cancer
     Dosage: DOSE AND FREQUENCY UNKNOWN
     Route: 041

REACTIONS (8)
  - Intestinal perforation [Unknown]
  - Adrenal insufficiency [Unknown]
  - Malaise [Unknown]
  - Decreased appetite [Unknown]
  - Diarrhoea [Unknown]
  - Hypothyroidism [Unknown]
  - Liver disorder [Unknown]
  - Psoas abscess [Unknown]
